FAERS Safety Report 10050023 (Version 1)
Quarter: 2014Q1

REPORT INFORMATION
  Report Type: Spontaneous
  Country: US (occurrence: None)
  Receive Date: 20140331
  Receipt Date: 20140331
  Transmission Date: 20141002
  Serious: Yes (Disabling)
  Sender: FDA-Public Use
  Company Number: None

PATIENT
  Age: 36 Year
  Sex: Female

DRUGS (1)
  1. KETOTIFEN [Suspect]
     Indication: EYE ALLERGY
     Dosage: 1 DROP, TWICE DAILY, INTO THE EYE
     Dates: start: 20140326, end: 20140330

REACTIONS (5)
  - Vision blurred [None]
  - Eye inflammation [None]
  - Ocular hyperaemia [None]
  - Photophobia [None]
  - Halo vision [None]
